FAERS Safety Report 7529270-8 (Version None)
Quarter: 2011Q2

REPORT INFORMATION
  Report Type: 
  Country: None (occurrence: None)
  Receive Date: 20110607
  Receipt Date: 20050707
  Transmission Date: 20111010
  Serious: Yes (Death)
  Sender: FDA-Public Use
  Company Number: PHHO2005AR10887

PATIENT
  Age: 71 Year
  Sex: Male

DRUGS (3)
  1. EPOGEN [Concomitant]
  2. SPIRONOLACTONE [Concomitant]
  3. DIOVAN [Suspect]
     Dates: start: 20050101

REACTIONS (4)
  - CARDIAC ARREST [None]
  - CARDIAC FAILURE [None]
  - MYELODYSPLASTIC SYNDROME [None]
  - ACUTE RESPIRATORY FAILURE [None]
